FAERS Safety Report 22251265 (Version 1)
Quarter: 2023Q2

REPORT INFORMATION
  Report Type: Spontaneous
  Country: CA (occurrence: CA)
  Receive Date: 20230425
  Receipt Date: 20230425
  Transmission Date: 20230721
  Serious: Yes (Hospitalization)
  Sender: FDA-Public Use
  Company Number: CA-FreseniusKabi-FK202305309

PATIENT
  Age: 80 Year
  Sex: Female
  Weight: 53 kg

DRUGS (1)
  1. PIPERACILLIN SODIUM\TAZOBACTAM SODIUM [Suspect]
     Active Substance: PIPERACILLIN SODIUM\TAZOBACTAM SODIUM
     Indication: Product used for unknown indication
     Route: 042

REACTIONS (5)
  - Serum sickness-like reaction [Unknown]
  - Blood creatinine increased [Unknown]
  - Vasculitis [Unknown]
  - Petechiae [Unknown]
  - Pancytopenia [Unknown]
